FAERS Safety Report 6577199-4 (Version None)
Quarter: 2010Q1

REPORT INFORMATION
  Report Type: 
  Country: None (occurrence: None)
  Receive Date: 20100210
  Receipt Date: 20100208
  Transmission Date: 20100710
  Serious: Yes (Death, Other)
  Sender: FDA-Public Use
  Company Number: PHEH2009US15334

PATIENT
  Sex: Female

DRUGS (2)
  1. DIOVAN [Suspect]
     Indication: CORONARY ARTERY DISEASE
     Dosage: 160 MG
     Route: 048
  2. DIOVAN [Suspect]
     Indication: CARDIOMYOPATHY

REACTIONS (2)
  - HEPATIC NEOPLASM MALIGNANT [None]
  - LIVER DISORDER [None]
